FAERS Safety Report 7156417-8 (Version None)
Quarter: 2010Q4

REPORT INFORMATION
  Report Type: 
  Country: None (occurrence: None)
  Receive Date: 20101214
  Receipt Date: 20101202
  Transmission Date: 20110411
  Serious: Yes (Other)
  Sender: FDA-Public Use
  Company Number: US-ROCHE-746852

PATIENT
  Sex: Female
  Weight: 69.9 kg

DRUGS (11)
  1. ACTEMRA [Suspect]
     Indication: RHEUMATOID ARTHRITIS
     Dosage: FORM: INFUSION
     Route: 042
     Dates: start: 20100701, end: 20100701
  2. ACTEMRA [Suspect]
     Route: 042
     Dates: start: 20100801, end: 20100801
  3. ACTEMRA [Suspect]
     Route: 042
     Dates: start: 20100901, end: 20100901
  4. ACTEMRA [Suspect]
     Route: 042
     Dates: start: 20101001, end: 20101001
  5. ACTEMRA [Suspect]
     Route: 042
     Dates: start: 20101109
  6. PLAQUENIL [Concomitant]
     Dates: end: 20101122
  7. LASIX [Concomitant]
     Indication: SWELLING
  8. COZAAR [Concomitant]
     Indication: BLOOD PRESSURE
  9. VOLTAREN [Concomitant]
     Indication: INFLAMMATION
  10. ASCORBIC ACID [Concomitant]
  11. VITAMIN E [Concomitant]

REACTIONS (9)
  - ABDOMINAL PAIN UPPER [None]
  - ASTHENIA [None]
  - BACK PAIN [None]
  - BLOOD PRESSURE INCREASED [None]
  - FALL [None]
  - LOWER LIMB FRACTURE [None]
  - NEURALGIA [None]
  - OEDEMA PERIPHERAL [None]
  - WEIGHT INCREASED [None]
